FAERS Safety Report 7794078-5 (Version None)
Quarter: 2011Q4

REPORT INFORMATION
  Report Type: 
  Country: None (occurrence: None)
  Receive Date: 20111004
  Receipt Date: 20110923
  Transmission Date: 20120403
  Serious: Yes (Other)
  Sender: FDA-Public Use
  Company Number: BR-JNJFOC-20110910645

PATIENT
  Age: 60 Year
  Sex: Female

DRUGS (2)
  1. REMICADE [Suspect]
     Indication: RHEUMATOID ARTHRITIS
     Route: 042
     Dates: start: 20110805
  2. REMICADE [Suspect]
     Route: 042
     Dates: start: 20110221

REACTIONS (3)
  - HYPERTENSION [None]
  - PNEUMONIA [None]
  - HYPERGLYCAEMIA [None]
